FAERS Safety Report 12687538 (Version 1)
Quarter: 2016Q3

REPORT INFORMATION
  Report Type: Spontaneous
  Country: US (occurrence: US)
  Receive Date: 20160825
  Receipt Date: 20160825
  Transmission Date: 20161109
  Serious: No
  Sender: FDA-Public Use
  Company Number: US-TEVA-685769USA

PATIENT
  Age: 72 Year
  Sex: Female

DRUGS (1)
  1. AZILECT [Suspect]
     Active Substance: RASAGILINE MESYLATE
     Route: 065

REACTIONS (4)
  - Heart valve incompetence [Unknown]
  - Presyncope [Unknown]
  - Cardiomegaly [Unknown]
  - Asthenia [Unknown]

NARRATIVE: CASE EVENT DATE: 20160815
